FAERS Safety Report 4652677-3 (Version None)
Quarter: 2005Q2

REPORT INFORMATION
  Report Type: 
  Country: None (occurrence: None)
  Receive Date: 20050502
  Receipt Date: 20050415
  Transmission Date: 20051028
  Serious: Yes (Other)
  Sender: FDA-Public Use
  Company Number: 2005065407

PATIENT

DRUGS (1)
  1. SOLU-CORTEF [Suspect]
     Indication: ILL-DEFINED DISORDER
     Dosage: 200 MG (1 D), INTRAVENOUS
     Route: 042
     Dates: start: 20050412, end: 20050412

REACTIONS (7)
  - CHEST DISCOMFORT [None]
  - COUGH [None]
  - DYSPNOEA [None]
  - FLUSHING [None]
  - NAUSEA [None]
  - PHARYNGOLARYNGEAL PAIN [None]
  - PRURITUS [None]
